FAERS Safety Report 7817114-6 (Version None)
Quarter: 2011Q4

REPORT INFORMATION
  Report Type: 
  Country: None (occurrence: None)
  Receive Date: 20111017
  Receipt Date: 20111004
  Transmission Date: 20120403
  Serious: Yes (Hospitalization, Other)
  Sender: FDA-Public Use
  Company Number: PHHY2011JP87773

PATIENT
  Sex: Male

DRUGS (5)
  1. TEGRETOL [Suspect]
     Dosage: 600 MG, UNK
     Route: 048
     Dates: start: 20110901
  2. ZYPREXA [Suspect]
     Dosage: 12.5 MG, UNK
     Route: 048
  3. TEGRETOL [Suspect]
     Dosage: 400 MG, UNK
     Route: 048
     Dates: start: 20110801, end: 20110901
  4. DEPAKENE [Suspect]
     Dosage: 1200 MG, UNK
     Route: 048
  5. LITHIUM CARBONATE [Concomitant]
     Dosage: 600 MG, UNK
     Route: 048

REACTIONS (8)
  - URINARY RETENTION [None]
  - DYSPHAGIA [None]
  - PARKINSONISM [None]
  - TREMOR [None]
  - MUSCLE RIGIDITY [None]
  - EYE MOVEMENT DISORDER [None]
  - HYPOKINESIA [None]
  - ALTERED STATE OF CONSCIOUSNESS [None]
